FAERS Safety Report 13698776 (Version 1)
Quarter: 2017Q2

REPORT INFORMATION
  Report Type: Spontaneous
  Country: US (occurrence: US)
  Receive Date: 20170627
  Receipt Date: 20170627
  Transmission Date: 20170830
  Serious: No
  Sender: FDA-Public Use
  Company Number: None

PATIENT
  Age: 40 Year
  Sex: Female

DRUGS (3)
  1. CLONAZEPAM. [Suspect]
     Active Substance: CLONAZEPAM
     Indication: ANXIETY
     Route: 048
     Dates: start: 20150918
  2. LEXAPRO [Concomitant]
     Active Substance: ESCITALOPRAM OXALATE
  3. FISH OIL [Concomitant]
     Active Substance: FISH OIL

REACTIONS (15)
  - Palpitations [None]
  - Panic attack [None]
  - Pain [None]
  - Vertigo [None]
  - Headache [None]
  - Blood glucose fluctuation [None]
  - Decreased appetite [None]
  - Dizziness [None]
  - Anxiety [None]
  - Fatigue [None]
  - Insomnia [None]
  - Akathisia [None]
  - Paraesthesia [None]
  - Sleep terror [None]
  - Depression [None]

NARRATIVE: CASE EVENT DATE: 20150918
